FAERS Safety Report 4323739-5 (Version None)
Quarter: 2004Q1

REPORT INFORMATION
  Report Type: 
  Country: None (occurrence: None)
  Receive Date: 20040323
  Receipt Date: 20040312
  Transmission Date: 20041129
  Serious: Yes (Other)
  Sender: FDA-Public Use
  Company Number: 2004-DE-01243GD

PATIENT
  Age: 18 Month

DRUGS (3)
  1. CYCLOPHOSPHAMIDE [Suspect]
     Indication: BONE MARROW TRANSPLANT
     Dosage: 200 MG/KG I.V. INFUSION IN DIVIDED DOSES OVER 4 DAYS, IV
     Route: 042
  2. BUSULPHAN (BUSULFAN) [Suspect]
     Dosage: 14 MG/KG P.O. IN DIVIDED DOSES
  3. FLUDARABINE (FLUDARABINE) [Suspect]
     Indication: BONE MARROW TRANSPLANT
     Dosage: 125 MG/M2

REACTIONS (1)
  - VENOOCCLUSIVE LIVER DISEASE [None]
